FAERS Safety Report 5310024-8 (Version None)
Quarter: 2007Q2

REPORT INFORMATION
  Report Type: 
  Country: None (occurrence: None)
  Receive Date: 20070427
  Receipt Date: 20070424
  Transmission Date: 20071010
  Serious: Yes (Other)
  Sender: FDA-Public Use
  Company Number: US-GLAXOSMITHKLINE-A0643695A

PATIENT
  Age: 73 Year
  Sex: Male

DRUGS (5)
  1. ADVAIR DISKUS 100/50 [Suspect]
     Indication: CHRONIC OBSTRUCTIVE PULMONARY DISEASE
     Dosage: 1PUFF TWICE PER DAY
     Route: 055
     Dates: start: 20050701
  2. COUMADIN [Concomitant]
  3. LIPITOR [Concomitant]
  4. ATENOLOL [Concomitant]
  5. WELLBUTRIN XL [Concomitant]

REACTIONS (5)
  - BRONCHITIS [None]
  - COUGH [None]
  - FUNGAL INFECTION [None]
  - PNEUMONIA [None]
  - PRODUCTIVE COUGH [None]
